FAERS Safety Report 9908272 (Version 2)
Quarter: 2014Q1

REPORT INFORMATION
  Report Type: Spontaneous
  Country: US (occurrence: US)
  Receive Date: 20140219
  Receipt Date: 20140219
  Transmission Date: 20141002
  Serious: No
  Sender: FDA-Public Use
  Company Number: US-US-EMD SERONO, INC.-236482K09USA

PATIENT
  Sex: Female

DRUGS (6)
  1. REBIF [Suspect]
     Indication: MULTIPLE SCLEROSIS
     Dates: end: 20090203
  2. REBIF [Suspect]
     Route: 058
     Dates: start: 20090608
  3. REBIF [Suspect]
     Route: 058
     Dates: start: 2009
  4. REBIF [Suspect]
     Route: 058
     Dates: start: 20131101
  5. REBIF [Suspect]
     Route: 058
     Dates: start: 201312
  6. CYTOXAN [Concomitant]
     Indication: PRODUCT USED FOR UNKNOWN INDICATION
     Dates: start: 2009

REACTIONS (5)
  - Urinary tract infection [Unknown]
  - Immunosuppression [Unknown]
  - Multiple sclerosis relapse [Unknown]
  - Hepatic enzyme increased [Unknown]
  - White blood cell count abnormal [Unknown]
